FAERS Safety Report 25385703 (Version 1)
Quarter: 2025Q2

REPORT INFORMATION
  Report Type: Spontaneous
  Country: US (occurrence: None)
  Receive Date: 20250602
  Receipt Date: 20250602
  Transmission Date: 20250716
  Serious: Yes (Hospitalization)
  Sender: FDA-CTU
  Company Number: None

PATIENT
  Age: 62 Year
  Sex: Female

DRUGS (2)
  1. CIPROFLOXACIN [Suspect]
     Active Substance: CIPROFLOXACIN
     Indication: Diverticulitis
     Dosage: OTHER QUANTITY : 1 TABLET(S);?FREQUENCY : EVERY 12 HOURS;?
     Route: 048
     Dates: start: 20220520, end: 20220528
  2. D2 50,000 units weekly [Concomitant]

REACTIONS (7)
  - Bone contusion [None]
  - Tendon injury [None]
  - Visual impairment [None]
  - Hypoaesthesia [None]
  - Paraesthesia [None]
  - Musculoskeletal disorder [None]
  - Mental disorder [None]

NARRATIVE: CASE EVENT DATE: 20220602
